FAERS Safety Report 8765516 (Version 2)
Quarter: 2012Q4

REPORT INFORMATION
  Report Type: 
  Country: US (occurrence: US)
  Receive Date: 20120903
  Receipt Date: 20120919
  Transmission Date: 20130627
  Serious: Yes (Hospitalization, Other)
  Sender: FDA-Public Use
  Company Number: US-BAYER-2012-090286

PATIENT
  Age: 75 Year
  Sex: Male
  Weight: 82.56 kg

DRUGS (4)
  1. XARELTO [Suspect]
     Indication: CEREBROVASCULAR ACCIDENT PROPHYLAXIS
     Dosage: 15 mg, QD
     Route: 048
     Dates: start: 20120810, end: 20120816
  2. XARELTO [Interacting]
     Indication: ATRIAL FIBRILLATION
  3. PLAVIX [Interacting]
     Indication: PRODUCT USED FOR UNKNOWN INDICATION
     Dosage: 75 mg, QD
     Route: 048
     Dates: end: 20120816
  4. ACETYLSALICYLIC ACID (} 100 MG) [Interacting]
     Indication: PRODUCT USED FOR UNKNOWN INDICATION
     Dosage: 81 mg, UNK
     Dates: end: 20120816

REACTIONS (5)
  - Gastrointestinal haemorrhage [Recovering/Resolving]
  - Melaena [Recovering/Resolving]
  - Haemoglobin decreased [None]
  - Haematocrit decreased [None]
  - Haemorrhoids [None]
